FAERS Safety Report 5192344-3 (Version None)
Quarter: 2006Q4

REPORT INFORMATION
  Report Type: 
  Country: None (occurrence: None)
  Receive Date: 20061227
  Receipt Date: 20060410
  Transmission Date: 20070319
  Serious: Yes (Hospitalization)
  Sender: FDA-Public Use
  Company Number: FR-PFIZER INC-2006050194

PATIENT
  Age: 65 Year
  Sex: Female
  Weight: 71 kg

DRUGS (6)
  1. XALATAN [Suspect]
     Dosage: TEXT:2 DOSE FORMS-FREQ:DAILY
     Route: 050
     Dates: start: 20060101, end: 20060329
  2. PIROXICAM [Suspect]
     Route: 048
  3. PROGESTERONE [Suspect]
     Dosage: TEXT:UNKNOWN
     Route: 048
  4. FLECAINIDE ACETATE [Suspect]
     Route: 048
     Dates: start: 20030115, end: 20060329
  5. GINKGO BILOBA LEAF EXTRACT [Suspect]
     Dosage: TEXT:3 DOSE FORMS-FREQ:DAILY
     Route: 048
     Dates: start: 20000101, end: 20060329
  6. ALPHAGAN [Suspect]
     Dosage: TEXT:2 DOSE FORMS-FREQ:DAILY
     Route: 050
     Dates: start: 20060101, end: 20060329

REACTIONS (3)
  - BONE MARROW FAILURE [None]
  - PANCYTOPENIA [None]
  - PYREXIA [None]
